FAERS Safety Report 8822998 (Version 1)
Quarter: 2012Q4

REPORT INFORMATION
  Report Type: 
  Country: US (occurrence: US)
  Receive Date: 20121003
  Receipt Date: 20121003
  Transmission Date: 20130627
  Serious: No
  Sender: FDA-Public Use
  Company Number: US-009507513-1209USA011819

PATIENT
  Sex: Male

DRUGS (3)
  1. VICTRELIS [Suspect]
     Dosage: 800 mg, tid
     Route: 048
     Dates: start: 201207
  2. PEG-INTRON [Suspect]
     Dosage: 150 Microgram, qw
     Dates: start: 201207
  3. RIBASPHERE [Concomitant]
     Dosage: 600 mg, bid
     Route: 048

REACTIONS (2)
  - Arthralgia [Unknown]
  - Influenza like illness [Unknown]
